FAERS Safety Report 12097459 (Version 1)
Quarter: 2016Q1

REPORT INFORMATION
  Report Type: Other
  Country: US (occurrence: US)
  Receive Date: 20160221
  Receipt Date: 20160221
  Transmission Date: 20160526
  Serious: No
  Sender: FDA-Public Use
  Company Number: US-ACORDA-ACO_110965_2015

PATIENT
  Age: 59 Year
  Sex: Male

DRUGS (2)
  1. TECFIDERA [Suspect]
     Active Substance: DIMETHYL FUMARATE
     Indication: PRODUCT USED FOR UNKNOWN INDICATION
     Dosage: UNK
     Route: 065
  2. AMPYRA [Suspect]
     Active Substance: DALFAMPRIDINE
     Indication: PRODUCT USED FOR UNKNOWN INDICATION
     Dosage: UNK
     Route: 065

REACTIONS (10)
  - Erythema [Unknown]
  - Paraesthesia [Unknown]
  - Ear discomfort [Unknown]
  - Burning sensation [Unknown]
  - Asthenia [Unknown]
  - Flushing [Unknown]
  - Pruritus [Unknown]
  - Ear pain [Unknown]
  - Fatigue [Unknown]
  - Tinnitus [Unknown]

NARRATIVE: CASE EVENT DATE: 20130811
